FAERS Safety Report 5843912-4 (Version None)
Quarter: 2008Q3

REPORT INFORMATION
  Report Type: 
  Country: None (occurrence: None)
  Receive Date: 20080813
  Receipt Date: 20080805
  Transmission Date: 20090109
  Serious: Yes (Other)
  Sender: FDA-Public Use
  Company Number: GB-AMGEN-US299529

PATIENT
  Sex: Female

DRUGS (9)
  1. ENBREL [Suspect]
     Indication: DRUG USE FOR UNKNOWN INDICATION
     Route: 058
     Dates: start: 20071201
  2. METHOTREXATE [Suspect]
     Indication: RHEUMATOID ARTHRITIS
     Route: 065
     Dates: end: 20080701
  3. METHOTREXATE [Suspect]
  4. METHOTREXATE [Suspect]
     Dates: end: 20080727
  5. METHOTREXATE [Suspect]
     Dates: start: 20080728
  6. FOLIC ACID [Concomitant]
     Route: 065
  7. HYDROXYCHLOROQUINE SULFATE [Concomitant]
     Indication: RHEUMATOID ARTHRITIS
     Route: 065
  8. OMEPRAZOLE [Concomitant]
     Indication: ABDOMINAL DISCOMFORT
     Dosage: UNKNOWN
     Route: 065
  9. SULFASALAZINE [Concomitant]
     Indication: RHEUMATOID ARTHRITIS
     Route: 065

REACTIONS (4)
  - INJECTION SITE IRRITATION [None]
  - INJECTION SITE REACTION [None]
  - NAUSEA [None]
  - RASH GENERALISED [None]
